FAERS Safety Report 6547249-X (Version None)
Quarter: 2010Q1

REPORT INFORMATION
  Report Type: 
  Country: None (occurrence: None)
  Receive Date: 20100122
  Receipt Date: 20090114
  Transmission Date: 20100710
  Serious: No
  Sender: FDA-Public Use
  Company Number: US-BAUSCH-2008BL004941

PATIENT
  Age: 77 Year
  Sex: Male

DRUGS (4)
  1. ZYLET [Suspect]
     Indication: CONJUNCTIVITIS
     Route: 047
     Dates: start: 20081117, end: 20081122
  2. METHOTREXATE [Concomitant]
  3. LASIX [Concomitant]
  4. METOPROLOL [Concomitant]

REACTIONS (2)
  - DRUG ADMINISTRATION ERROR [None]
  - DRUG INEFFECTIVE [None]
